FAERS Safety Report 4308634-X (Version None)
Quarter: 2004Q1

REPORT INFORMATION
  Report Type: 
  Country: None (occurrence: None)
  Receive Date: 20040227
  Receipt Date: 20040223
  Transmission Date: 20041129
  Serious: Yes (Hospitalization)
  Sender: FDA-Public Use
  Company Number: TPA2004A00061

PATIENT
  Age: 82 Year
  Sex: Female
  Weight: 51.2565 kg

DRUGS (6)
  1. ACTOS [Suspect]
     Indication: DIABETES MELLITUS NON-INSULIN-DEPENDENT
     Dosage: 30 MG, 1 IN 1 D, PER ORAL
     Route: 048
     Dates: start: 20031029, end: 20031210
  2. PAXIL CR (PAROXETINE HYDROCHLORIDE) (25 MILLIGRAM) [Concomitant]
  3. FOSAMAX [Concomitant]
  4. TYLENOL #3 (GALENIC/PARACETAMOL/CODEINE/) [Concomitant]
  5. ZESTORETIC (LISINOPRIL) [Concomitant]
  6. TIAZAC CD (DILTIAZEM) (240 MILLIGRAM) [Concomitant]

REACTIONS (3)
  - FALL [None]
  - PELVIC FRACTURE [None]
  - WEIGHT INCREASED [None]
